FAERS Safety Report 4719924-0 (Version None)
Quarter: 2005Q3

REPORT INFORMATION
  Report Type: 
  Country: None (occurrence: None)
  Receive Date: 20050721
  Receipt Date: 20050125
  Transmission Date: 20060218
  Serious: No
  Sender: FDA-Public Use
  Company Number: US-GLAXOSMITHKLINE-A0542180A

PATIENT
  Age: 62 Year
  Sex: Female

DRUGS (8)
  1. AVANDIA [Suspect]
     Dosage: 4MG PER DAY
     Route: 048
  2. WELLBUTRIN [Concomitant]
  3. ASPIRIN [Concomitant]
  4. KLONOPIN [Concomitant]
  5. AMBIEN [Concomitant]
  6. LIPITOR [Concomitant]
  7. VIVELLE [Concomitant]
     Route: 062
  8. LEVOTHYROXINE [Concomitant]

REACTIONS (3)
  - CHROMATURIA [None]
  - URINE ODOUR ABNORMAL [None]
  - WEIGHT INCREASED [None]
